FAERS Safety Report 4514956-X (Version None)
Quarter: 2004Q4

REPORT INFORMATION
  Report Type: 
  Country: None (occurrence: None)
  Receive Date: 20041201
  Receipt Date: 20041119
  Transmission Date: 20050328
  Serious: Yes (Other)
  Sender: FDA-Public Use
  Company Number: PHBS2004CA15766

PATIENT
  Age: 72 Year
  Sex: Male

DRUGS (8)
  1. DIOVAN [Suspect]
     Dosage: 160 MG/DAY
     Route: 048
  2. DIOVAN [Suspect]
     Dosage: 80 MG/DAY
     Route: 048
  3. LIPITOR [Concomitant]
     Dates: end: 20040923
  4. NIACIN [Concomitant]
  5. AMIODARONE [Concomitant]
  6. ATENOLOL [Concomitant]
  7. CITALOPRAM [Concomitant]
  8. WARFARIN SODIUM [Concomitant]

REACTIONS (10)
  - BACK PAIN [None]
  - CONTUSION [None]
  - FEELING ABNORMAL [None]
  - FEELING HOT [None]
  - MUSCULAR WEAKNESS [None]
  - NAIL INFECTION [None]
  - NASAL CONGESTION [None]
  - NECROSIS [None]
  - PAIN IN EXTREMITY [None]
  - SNEEZING [None]
